FAERS Safety Report 14969912 (Version 1)
Quarter: 2018Q2

REPORT INFORMATION
  Report Type: Spontaneous
  Country: FR (occurrence: FR)
  Receive Date: 20180604
  Receipt Date: 20180604
  Transmission Date: 20180711
  Serious: Yes (Hospitalization)
  Sender: FDA-Public Use
  Company Number: FR-TEVA-2018-FR-899574

PATIENT
  Age: 49 Year
  Sex: Female

DRUGS (3)
  1. CEFTRIAXONE BASE [Suspect]
     Active Substance: CEFTRIAXONE
     Indication: ENDOCARDITIS
     Route: 042
     Dates: start: 20180130, end: 20180226
  2. DOXYCYCLINE. [Suspect]
     Active Substance: DOXYCYCLINE
     Indication: ENDOCARDITIS
     Route: 048
     Dates: start: 20180130, end: 20180226
  3. GENTAMICINE [Suspect]
     Active Substance: GENTAMICIN
     Indication: ENDOCARDITIS
     Route: 042
     Dates: start: 20180220, end: 20180226

REACTIONS (1)
  - Agranulocytosis [Recovered/Resolved]

NARRATIVE: CASE EVENT DATE: 20180226
